FAERS Safety Report 5382338-7 (Version None)
Quarter: 2007Q2

REPORT INFORMATION
  Report Type: 
  Country: None (occurrence: None)
  Receive Date: 20070629
  Receipt Date: 20070226
  Transmission Date: 20071010
  Serious: Yes (Death, Hospitalization, Other)
  Sender: FDA-Public Use
  Company Number: US200702001383

PATIENT
  Sex: Male

DRUGS (2)
  1. HUMALOG [Suspect]
     Indication: DIABETES MELLITUS NON-INSULIN-DEPENDENT
     Dosage: AS NEEDED, SUBCUTANEOUS
     Route: 058
     Dates: start: 19870101
  2. HUMALOG PEN [Concomitant]

REACTIONS (6)
  - BILIARY TRACT DISORDER [None]
  - DIALYSIS [None]
  - GALLBLADDER OPERATION [None]
  - HEPATIC FAILURE [None]
  - LIVER OPERATION [None]
  - RENAL FAILURE [None]
